FAERS Safety Report 10154131 (Version 2)
Quarter: 2014Q2

REPORT INFORMATION
  Report Type: Spontaneous
  Country: US (occurrence: US)
  Receive Date: 20140506
  Receipt Date: 20140506
  Transmission Date: 20141212
  Serious: Yes (Hospitalization)
  Sender: FDA-Public Use
  Company Number: US-ROCHE-1381344

PATIENT
  Age: 66 Year
  Sex: Male

DRUGS (12)
  1. TARCEVA [Suspect]
     Indication: LUNG NEOPLASM MALIGNANT
     Dosage: FREQUENCY: DAILY
     Route: 048
     Dates: start: 20131225
  2. TARCEVA [Suspect]
     Dosage: FREQUENCY: DAILY
     Route: 048
     Dates: start: 20140207
  3. AVASTIN [Suspect]
     Indication: LUNG ADENOCARCINOMA
     Route: 065
     Dates: start: 20130730, end: 20131212
  4. CRESTOR [Concomitant]
  5. METFORMIN [Concomitant]
  6. ASPIRIN [Concomitant]
  7. KLOR-CON [Concomitant]
  8. CLOPIDOGREL [Concomitant]
  9. CLOTRIMAZOLE [Concomitant]
  10. CRESTOR [Concomitant]
  11. TAXOL [Concomitant]
     Route: 065
     Dates: start: 20130730
  12. CARBOPLATIN [Concomitant]
     Route: 065
     Dates: start: 20130730

REACTIONS (7)
  - Hypovolaemia [Unknown]
  - Nausea [Unknown]
  - Vomiting [Unknown]
  - Bone marrow failure [Unknown]
  - Diarrhoea [Unknown]
  - Neoplasm [Unknown]
  - Rash [Unknown]
